FAERS Safety Report 13944491 (Version 1)
Quarter: 2017Q3

REPORT INFORMATION
  Report Type: Spontaneous
  Country: RU (occurrence: RU)
  Receive Date: 20170907
  Receipt Date: 20170907
  Transmission Date: 20171128
  Serious: Yes (Death)
  Sender: FDA-Public Use
  Company Number: RU-BAYER-2016-066507

PATIENT
  Age: 54 Year
  Sex: Female

DRUGS (1)
  1. ULTRAVIST [Suspect]
     Active Substance: IOPROMIDE
     Indication: ARTERIOGRAM CORONARY
     Dosage: UNK, ONCE
     Route: 013
     Dates: start: 20150115, end: 20150115

REACTIONS (16)
  - Cardiovascular disorder [Fatal]
  - Renal disorder [Fatal]
  - Myocardial infarction [Fatal]
  - Angina pectoris [Fatal]
  - Oedema [Fatal]
  - Gastritis erosive [Fatal]
  - Ischaemic hepatitis [Fatal]
  - Cardiogenic shock [Fatal]
  - Large intestine erosion [Fatal]
  - Spleen disorder [Fatal]
  - Bradycardia [Fatal]
  - Cardiac arrest [Fatal]
  - Multiple organ dysfunction syndrome [Fatal]
  - Gastrointestinal erosion [Fatal]
  - Brain oedema [Fatal]
  - Altered state of consciousness [Fatal]

NARRATIVE: CASE EVENT DATE: 20150115
